FAERS Safety Report 17760671 (Version 1)
Quarter: 2020Q2

REPORT INFORMATION
  Report Type: Spontaneous
  Country: US (occurrence: US)
  Receive Date: 20200507
  Receipt Date: 20200507
  Transmission Date: 20200714
  Serious: Yes (Other)
  Sender: FDA-Public Use
  Company Number: None

PATIENT
  Age: 68 Year
  Sex: Female
  Weight: 63.9 kg

DRUGS (9)
  1. NIVOLUMAB 100MG/10ML BMS [Suspect]
     Active Substance: NIVOLUMAB
     Indication: BREAST CANCER METASTATIC
     Route: 042
     Dates: start: 20190724, end: 20200318
  2. TYLENOL [Concomitant]
     Active Substance: ACETAMINOPHEN
  3. EFFEXOR XR [Concomitant]
     Active Substance: VENLAFAXINE HYDROCHLORIDE
  4. ROXICODONE [Concomitant]
     Active Substance: OXYCODONE HYDROCHLORIDE
  5. IPILIMUMAB 200MG/40ML [Suspect]
     Active Substance: IPILIMUMAB
     Indication: BREAST CANCER METASTATIC
     Route: 042
     Dates: start: 20190724, end: 20200219
  6. OMEGA-3 FATTY ACIDS [Concomitant]
     Active Substance: OMEGA-3 FATTY ACIDS
  7. BICALUTAMIDE-50MG [Suspect]
     Active Substance: BICALUTAMIDE
     Indication: BREAST CANCER METASTATIC
     Route: 048
     Dates: start: 20190724, end: 20200331
  8. METHYLPHENIDATE (RITALIN) [Concomitant]
  9. METROLNIDAZOLE (METROCREAM) [Concomitant]

REACTIONS (1)
  - Immune-mediated hepatitis [None]

NARRATIVE: CASE EVENT DATE: 20200401
